FAERS Safety Report 20367723 (Version 2)
Quarter: 2022Q1

REPORT INFORMATION
  Report Type: Other
  Country: CA (occurrence: None)
  Receive Date: 20220124
  Receipt Date: 20220315
  Transmission Date: 20220424
  Serious: No
  Sender: FDA-Public Use
  Company Number: CA-ROCHE-2742098

PATIENT
  Age: 50 Year
  Sex: Female

DRUGS (5)
  1. OCREVUS [Suspect]
     Active Substance: OCRELIZUMAB
     Indication: Relapsing-remitting multiple sclerosis
     Dosage: LIQUID 300 MG/VIAL 600 MG IV ONCE FOR 6 MONTHS?NEXT INFUSION: 29/DEC/2021
     Route: 042
     Dates: start: 20201121
  2. OCREVUS [Suspect]
     Active Substance: OCRELIZUMAB
     Dosage: 300 MG AT DAY 0 AND 14, THEN 600 MG EVERY 6 MONTH
     Route: 042
     Dates: start: 20191121
  3. VENLAFAXINE [Concomitant]
     Active Substance: VENLAFAXINE HYDROCHLORIDE
     Indication: Hot flush
  4. CLONIDINE [Concomitant]
     Active Substance: CLONIDINE
  5. GABAPENTIN [Concomitant]
     Active Substance: GABAPENTIN

REACTIONS (13)
  - Weight increased [Not Recovered/Not Resolved]
  - Tinnitus [Recovering/Resolving]
  - Ear discomfort [Recovering/Resolving]
  - Sinus congestion [Recovering/Resolving]
  - Cold-stimulus headache [Recovered/Resolved]
  - Nasal septum deviation [Not Recovered/Not Resolved]
  - Dyskinesia [Not Recovered/Not Resolved]
  - Hot flush [Not Recovered/Not Resolved]
  - Menopause [Not Recovered/Not Resolved]
  - Pain in extremity [Recovering/Resolving]
  - SARS-CoV-2 test positive [Not Recovered/Not Resolved]
  - Arthropathy [Not Recovered/Not Resolved]
  - Hypoaesthesia [Recovering/Resolving]

NARRATIVE: CASE EVENT DATE: 20210115
